FAERS Safety Report 23446139 (Version 1)
Quarter: 2024Q1

REPORT INFORMATION
  Report Type: Spontaneous
  Country: US (occurrence: US)
  Receive Date: 20240126
  Receipt Date: 20240126
  Transmission Date: 20240410
  Serious: No
  Sender: FDA-Public Use
  Company Number: US-ABBVIE-5598455

PATIENT
  Sex: Female

DRUGS (3)
  1. FLUOROMETHOLONE [Suspect]
     Active Substance: FLUOROMETHOLONE
     Indication: Product used for unknown indication
     Dosage: FREQUENCY TEXT: 2 DROPS A DAY?FORM STRENGTH-1MG/ML SUSPENSION
     Route: 065
     Dates: start: 20231121
  2. FLUOROMETHOLONE [Suspect]
     Active Substance: FLUOROMETHOLONE
     Dosage: FREQUENCY TEXT:1 DROP A DAY?FORM STRENGTH: 1MG/ML SUSPENSION
     Route: 065
  3. FLUOROMETHOLONE [Suspect]
     Active Substance: FLUOROMETHOLONE
     Dosage: FORM STRENGTH: 1MG/ML SUSPENSION
     Route: 065

REACTIONS (3)
  - Cardiac failure congestive [Unknown]
  - Cardiac disorder [Unknown]
  - Insomnia [Unknown]
